FAERS Safety Report 8986169 (Version 1)
Quarter: 2012Q4

REPORT INFORMATION
  Report Type: Spontaneous
  Country: US (occurrence: None)
  Receive Date: 20121219
  Receipt Date: 20121219
  Transmission Date: 20130627
  Serious: Yes (Death)
  Sender: FDA-Public Use
  Company Number: None

PATIENT
  Age: 78 Year
  Sex: Female

DRUGS (1)
  1. LUCENTIS [Suspect]
     Indication: WET MACULAR DEGENERATION
     Dosage: 1  every four weeks Intraocular
     Route: 031
     Dates: start: 20110913, end: 20111123

REACTIONS (1)
  - Death [None]
